FAERS Safety Report 12320885 (Version 1)
Quarter: 2016Q2

REPORT INFORMATION
  Report Type: Spontaneous
  Country: US (occurrence: US)
  Receive Date: 20160429
  Receipt Date: 20160429
  Transmission Date: 20160815
  Serious: No
  Sender: FDA-Public Use
  Company Number: US-ROCHE-1632313

PATIENT
  Sex: Female

DRUGS (7)
  1. OMEPRAZOLE. [Concomitant]
     Active Substance: OMEPRAZOLE
  2. VITAMIN D3 [Concomitant]
     Active Substance: CHOLECALCIFEROL
  3. ESBRIET [Suspect]
     Active Substance: PIRFENIDONE
     Indication: IDIOPATHIC PULMONARY FIBROSIS
     Route: 048
     Dates: start: 20150813
  4. SIMVASTATIN. [Concomitant]
     Active Substance: SIMVASTATIN
  5. LORATADINE. [Concomitant]
     Active Substance: LORATADINE
  6. ELIQUIS [Concomitant]
     Active Substance: APIXABAN
  7. PROPAFENONE. [Concomitant]
     Active Substance: PROPAFENONE

REACTIONS (4)
  - Sinusitis [Unknown]
  - Dyspepsia [Unknown]
  - Drug dose omission [Unknown]
  - Nausea [Not Recovered/Not Resolved]
